FAERS Safety Report 6500647-2 (Version None)
Quarter: 2009Q4

REPORT INFORMATION
  Report Type: 
  Country: None (occurrence: None)
  Receive Date: 20091216
  Receipt Date: 20081217
  Transmission Date: 20100525
  Serious: No
  Sender: FDA-Public Use
  Company Number: A0760871A

PATIENT
  Age: 68 Year
  Sex: Female

DRUGS (1)
  1. NICOTINE POLACRILEX [Suspect]
     Dates: start: 20081216, end: 20081216

REACTIONS (2)
  - DYSPEPSIA [None]
  - OESOPHAGEAL PAIN [None]
